FAERS Safety Report 10181487 (Version 1)
Quarter: 2014Q2

REPORT INFORMATION
  Report Type: Spontaneous
  Country: US (occurrence: US)
  Receive Date: 20140519
  Receipt Date: 20140519
  Transmission Date: 20141212
  Serious: Yes (Other)
  Sender: FDA-Public Use
  Company Number: US-ACTAVIS-2014-09870

PATIENT
  Sex: Female

DRUGS (1)
  1. DEXTROAMPHETAMINE-AMPHETAMINE (AELLC) [Suspect]
     Indication: PRODUCT USED FOR UNKNOWN INDICATION
     Dosage: UNK, UNKNOWN
     Route: 065

REACTIONS (7)
  - Suicidal ideation [Unknown]
  - Drug ineffective [Unknown]
  - Headache [Unknown]
  - Depression [Unknown]
  - Educational problem [Unknown]
  - Disturbance in attention [Unknown]
  - Fatigue [Unknown]
